FAERS Safety Report 7231816-4 (Version None)
Quarter: 2011Q1

REPORT INFORMATION
  Report Type: 
  Country: None (occurrence: None)
  Receive Date: 20110118
  Receipt Date: 20110103
  Transmission Date: 20110831
  Serious: Yes (Hospitalization)
  Sender: FDA-Public Use
  Company Number: FR-ASTRAZENECA-2011SE00471

PATIENT
  Age: 24298 Day
  Sex: Male

DRUGS (21)
  1. ATACAND [Suspect]
     Route: 048
     Dates: start: 20030620
  2. EZETROL [Suspect]
     Route: 048
     Dates: start: 20060131, end: 20080129
  3. LESCOL [Concomitant]
     Dates: start: 20050531, end: 20050720
  4. LOPERAMIDE [Concomitant]
     Dosage: OCCASIONALLY
  5. KLIPPAL CODEINE [Concomitant]
     Dosage: 1 TO 2 TABLETS DAILY AS REQUIRED
     Dates: start: 20100801
  6. TIORFAN [Suspect]
     Dosage: OCCASIONALLY
  7. CRESTOR [Concomitant]
     Route: 048
     Dates: start: 20090101, end: 20090112
  8. PROCORALAN [Concomitant]
     Dates: start: 20100505
  9. PRAVASTATIN SODIUM [Concomitant]
     Dates: start: 20030620, end: 20050503
  10. ALUMINUM HYDROXIDE AND MAGNESIUM TRISILICATE [Suspect]
     Dosage: OCCASIONALLY
  11. AMIODARONE HCL [Suspect]
     Route: 048
     Dates: start: 20030620, end: 20041001
  12. LIPANTHYL [Concomitant]
     Dates: start: 20051212, end: 20060101
  13. PREVISCAN [Suspect]
     Dosage: BETWEEN 5 AND 10 MG DAILY
     Route: 048
  14. CORDARONE [Suspect]
     Route: 048
     Dates: start: 20070528, end: 20091001
  15. ASPIRIN [Suspect]
     Dates: start: 20061209
  16. SIMVASTATIN [Concomitant]
     Dates: start: 20050823, end: 20050912
  17. QUESTRAN [Concomitant]
     Dates: start: 20080131, end: 20080221
  18. LIPANTHYL [Concomitant]
     Dates: start: 20051017, end: 20051211
  19. SPASFON [Concomitant]
     Dosage: OCCASIONALLY
  20. ASPIRIN [Suspect]
     Dates: start: 20030620, end: 20061208
  21. CARDENSIEL [Concomitant]
     Dates: start: 20091107, end: 20100504

REACTIONS (1)
  - PANCREATITIS CHRONIC [None]
